FAERS Safety Report 12386662 (Version 1)
Quarter: 2016Q2

REPORT INFORMATION
  Report Type: Spontaneous
  Country: US (occurrence: US)
  Receive Date: 20160519
  Receipt Date: 20160519
  Transmission Date: 20160815
  Serious: Yes (Other)
  Sender: FDA-Public Use
  Company Number: US-MDT-ADR-2016-00465

PATIENT
  Age: 62 Year
  Sex: Female

DRUGS (2)
  1. LIORESAL [Suspect]
     Active Substance: BACLOFEN
     Dosage: 78.9MCG/DAY
     Route: 037
     Dates: end: 20160304
  2. LIORESAL [Suspect]
     Active Substance: BACLOFEN
     Dosage: 96MCG/DAY
     Route: 037
     Dates: start: 20160304, end: 20160307

REACTIONS (3)
  - Hypotonia [Unknown]
  - Pollakiuria [Unknown]
  - Overdose [Unknown]

NARRATIVE: CASE EVENT DATE: 20160307
